FAERS Safety Report 20147689 (Version 1)
Quarter: 2021Q4

REPORT INFORMATION
  Report Type: Spontaneous
  Country: US (occurrence: US)
  Receive Date: 20211203
  Receipt Date: 20211203
  Transmission Date: 20220304
  Serious: No
  Sender: FDA-Public Use
  Company Number: US-SA-SAC20211129000271

PATIENT
  Sex: Female

DRUGS (1)
  1. AUBAGIO [Suspect]
     Active Substance: TERIFLUNOMIDE
     Dosage: 1 DF, QD
     Route: 048

REACTIONS (2)
  - Disease progression [Unknown]
  - Drug ineffective [Unknown]
